FAERS Safety Report 7675721-8 (Version None)
Quarter: 2011Q3

REPORT INFORMATION
  Report Type: 
  Country: None (occurrence: None)
  Receive Date: 20110810
  Receipt Date: 20110803
  Transmission Date: 20111222
  Serious: Yes (Other)
  Sender: FDA-Public Use
  Company Number: PHEH2008US02653

PATIENT
  Sex: Female

DRUGS (57)
  1. METHOTREXATE [Concomitant]
  2. DROPERIDOL [Concomitant]
     Dosage: 0.625 MG, DAILY
  3. VIOXX [Concomitant]
     Dosage: 12.5 MG, BID
     Route: 048
  4. FLEXERIL [Concomitant]
  5. AREDIA [Suspect]
     Dosage: 90 MG, QMO
     Route: 042
     Dates: start: 20000101
  6. ULTRAM [Concomitant]
     Dosage: 50 MG / Q4
  7. FELDENE [Concomitant]
  8. CELEBREX [Concomitant]
  9. KLOR-CON [Concomitant]
  10. ATENOLOL [Concomitant]
     Dosage: 50 MG, QD
     Route: 048
     Dates: start: 19980101
  11. FOLATE SODIUM [Concomitant]
  12. CRESTOR [Concomitant]
     Dosage: 5 MG, UNK
  13. CLINDAMYCIN [Concomitant]
  14. AROMASIN [Concomitant]
  15. NEXIUM [Concomitant]
  16. PERCOCET [Concomitant]
  17. TORADOL [Concomitant]
     Dosage: 30 MG, DAILY
  18. RADIATION THERAPY [Concomitant]
  19. DARVOCET-N 50 [Concomitant]
  20. AMBIEN [Concomitant]
  21. NEUPOGEN [Concomitant]
  22. ADRIAMYCIN PFS [Concomitant]
  23. NORVASC [Concomitant]
     Dates: start: 20010101
  24. DEMEROL [Concomitant]
     Dosage: 50 MG, UNK
  25. ELAVIL [Concomitant]
     Dosage: 50 MG, QD
  26. XANAX [Concomitant]
     Dosage: 0.5 MG, BID
  27. SOLU-CORTEF [Concomitant]
     Dosage: 100 MG, UNK
  28. WARFARIN SODIUM [Concomitant]
     Dosage: 2.5 MG, UNK
  29. TAXOTERE [Concomitant]
  30. CIPRO [Concomitant]
  31. CALCITRIOL [Concomitant]
  32. SENOKOT                                 /USA/ [Concomitant]
  33. LEXAPRO [Concomitant]
  34. METOPROLOL TARTRATE [Concomitant]
  35. ASPIRIN [Concomitant]
  36. LYRICA [Concomitant]
  37. PREDNISONE [Concomitant]
     Indication: RHEUMATOID ARTHRITIS
     Dosage: 5 MG, QD
     Route: 048
     Dates: start: 19900101
  38. MORPHINE [Concomitant]
     Dosage: 2 MG - 4  MG/Q 1-2 HRS PRN
  39. VALIUM [Concomitant]
  40. LASIX [Concomitant]
     Dosage: 40 MG, 3 BY MOUTH, DAILY
  41. PROCRIT                            /00909301/ [Concomitant]
  42. COUMADIN [Concomitant]
  43. CLONIDINE [Concomitant]
  44. TENORMIN [Concomitant]
  45. ARIMIDEX [Concomitant]
     Dosage: 1 MG, DAILY
     Route: 048
  46. XELODA [Concomitant]
  47. HYDRODIURIL [Concomitant]
  48. HALCION [Concomitant]
  49. CYMBALTA [Concomitant]
  50. AMITRIPTYLINE HCL [Concomitant]
  51. FASLODEX [Concomitant]
  52. ZOMETA [Suspect]
     Dates: end: 20030101
  53. TAMOXIFEN CITRATE [Concomitant]
     Dosage: 10 MG, BID
  54. FOLIC ACID [Concomitant]
     Route: 048
  55. LOVAZA [Concomitant]
     Dosage: 2 DF, DAILY
  56. COLACE [Concomitant]
  57. LIPITOR [Concomitant]

REACTIONS (76)
  - VERTEBRAL WEDGING [None]
  - ORTHOSIS USER [None]
  - IRRITABLE BOWEL SYNDROME [None]
  - ANAEMIA [None]
  - PHARYNGEAL ERYTHEMA [None]
  - BRAIN CANCER METASTATIC [None]
  - LUNG DISORDER [None]
  - OSTEOMYELITIS [None]
  - INJURY [None]
  - HYPERLIPIDAEMIA [None]
  - PARAESTHESIA [None]
  - LACTOSE INTOLERANCE [None]
  - CEREBRAL ATROPHY [None]
  - BONE LESION [None]
  - PLEURAL EFFUSION [None]
  - INSOMNIA [None]
  - HYPOVOLAEMIA [None]
  - AORTIC ARTERIOSCLEROSIS [None]
  - ATRIAL FLUTTER [None]
  - DEEP VEIN THROMBOSIS [None]
  - FIBROMYALGIA [None]
  - HYPOKALAEMIA [None]
  - DENTAL CARIES [None]
  - PRIMARY SEQUESTRUM [None]
  - TOOTH ABSCESS [None]
  - PATHOLOGICAL FRACTURE [None]
  - OSTEITIS [None]
  - NEOPLASM MALIGNANT [None]
  - NECK PAIN [None]
  - PULMONARY EMBOLISM [None]
  - MENINGIOMA [None]
  - METASTASES TO SPINE [None]
  - LUMBAR SPINAL STENOSIS [None]
  - EYE DISORDER [None]
  - PYOGENIC GRANULOMA [None]
  - PULMONARY HYPERTENSION [None]
  - ANHEDONIA [None]
  - DENTURE WEARER [None]
  - CERVICAL CORD COMPRESSION [None]
  - GRANULOMA [None]
  - HAND DEFORMITY [None]
  - SCOLIOSIS [None]
  - INTERVERTEBRAL DISC PROTRUSION [None]
  - PERIODONTAL INFECTION [None]
  - OSTEONECROSIS OF JAW [None]
  - BONE LOSS [None]
  - BASAL CELL CARCINOMA [None]
  - NEUROPATHY PERIPHERAL [None]
  - THROMBOSIS [None]
  - BURSITIS [None]
  - DIVERTICULUM INTESTINAL [None]
  - RIB FRACTURE [None]
  - RETROPERITONEAL HAEMATOMA [None]
  - HIATUS HERNIA [None]
  - CORONARY ARTERY DISEASE [None]
  - DYSPNOEA [None]
  - DEVICE RELATED INFECTION [None]
  - ATELECTASIS [None]
  - PANCREATIC ATROPHY [None]
  - METASTASES TO BONE [None]
  - ATRIAL FIBRILLATION [None]
  - OSTEOARTHRITIS [None]
  - KYPHOSIS [None]
  - PAIN [None]
  - DISABILITY [None]
  - BONE PAIN [None]
  - INTERVERTEBRAL DISC DISORDER [None]
  - TIC [None]
  - MUSCULOSKELETAL DISCOMFORT [None]
  - ANXIETY [None]
  - ASTHENIA [None]
  - RIB DEFORMITY [None]
  - PERICARDIAL EFFUSION [None]
  - INTERVERTEBRAL DISC DEGENERATION [None]
  - RENAL ATROPHY [None]
  - CARDIAC FAILURE CONGESTIVE [None]
